FAERS Safety Report 22667041 (Version 2)
Quarter: 2023Q4

REPORT INFORMATION
  Report Type: Other
  Country: CA (occurrence: CA)
  Receive Date: 20230704
  Receipt Date: 20231031
  Transmission Date: 20240110
  Serious: No
  Sender: FDA-Public Use
  Company Number: CA-TOLMAR, INC.-23CA041534

PATIENT
  Age: 81 Year
  Sex: Male

DRUGS (4)
  1. ELIGARD [Suspect]
     Active Substance: LEUPROLIDE ACETATE
     Indication: Prostate cancer
     Dosage: 30 MILLIGRAM, Q 4 MONTH
     Route: 058
     Dates: start: 20230616
  2. ELIGARD [Suspect]
     Active Substance: LEUPROLIDE ACETATE
     Dosage: 30 MILLIGRAM, Q 4 MONTH
     Route: 058
     Dates: start: 20231014
  3. ELIGARD [Suspect]
     Active Substance: LEUPROLIDE ACETATE
     Indication: Prostate cancer
     Dosage: UNK
  4. TAMSULOSIN [Suspect]
     Active Substance: TAMSULOSIN
     Indication: Product used for unknown indication
     Dosage: UNK

REACTIONS (10)
  - Sensory disturbance [Unknown]
  - Dysgeusia [Unknown]
  - Intentional product use issue [Unknown]
  - Injection site pain [Recovered/Resolved]
  - Injection site mass [Unknown]
  - Hot flush [Unknown]
  - Dizziness [Unknown]
  - Fatigue [Unknown]
  - Dysuria [Unknown]
  - Asthenia [Unknown]

NARRATIVE: CASE EVENT DATE: 20230616
